FAERS Safety Report 10573788 (Version 1)
Quarter: 2014Q4

REPORT INFORMATION
  Report Type: Spontaneous
  Country: DE (occurrence: DE)
  Receive Date: 20141110
  Receipt Date: 20141110
  Transmission Date: 20150529
  Serious: Yes (Other)
  Sender: FDA-Public Use
  Company Number: DE-AUROBINDO-AUR-APL-2014-11640

PATIENT
  Age: 26 Year
  Sex: Female

DRUGS (1)
  1. SETRALINE 100MG [Suspect]
     Active Substance: SERTRALINE HYDROCHLORIDE
     Indication: DEPRESSION
     Dosage: 100 MG, DAILY
     Route: 048

REACTIONS (3)
  - Cholelithiasis [Unknown]
  - Liver function test abnormal [Unknown]
  - Exposure during pregnancy [Unknown]
